FAERS Safety Report 5673959-2 (Version None)
Quarter: 2008Q1

REPORT INFORMATION
  Report Type: 
  Country: None (occurrence: None)
  Receive Date: 20080317
  Receipt Date: 20080229
  Transmission Date: 20080703
  Serious: Yes (Hospitalization)
  Sender: FDA-Public Use
  Company Number: 2008SP004335

PATIENT
  Age: 63 Year
  Sex: Male

DRUGS (3)
  1. IMDUR [Suspect]
     Indication: ANGINA PECTORIS
     Dosage: 1 DF;QD;PO
     Route: 048
     Dates: start: 20080101, end: 20080219
  2. METFORMIN HCL [Concomitant]
  3. DIAPREL [Concomitant]

REACTIONS (4)
  - ACUTE MYOCARDIAL INFARCTION [None]
  - BUNDLE BRANCH BLOCK LEFT [None]
  - DRUG INEFFECTIVE [None]
  - MYOCARDIAL FIBROSIS [None]
